FAERS Safety Report 20757673 (Version 1)
Quarter: 2022Q2

REPORT INFORMATION
  Report Type: Spontaneous
  Country: US (occurrence: None)
  Receive Date: 20220427
  Receipt Date: 20220427
  Transmission Date: 20220720
  Serious: No
  Sender: FDA-Public Use
  Company Number: None

PATIENT
  Age: 37 Year
  Sex: Female
  Weight: 133.81 kg

DRUGS (4)
  1. SYNTHROID [Suspect]
     Active Substance: LEVOTHYROXINE SODIUM
  2. Synlhroid [Concomitant]
     Dates: start: 20171101
  3. ARMOUR THYROID [Concomitant]
     Active Substance: THYROID, PORCINE
     Dates: end: 20180801
  4. ARMOUR THYROID [Suspect]
     Active Substance: THYROID, PORCINE

REACTIONS (4)
  - Anxiety [None]
  - Tremor [None]
  - Temperature intolerance [None]
  - Palpitations [None]

NARRATIVE: CASE EVENT DATE: 20171101
